FAERS Safety Report 6549343-6 (Version None)
Quarter: 2010Q1

REPORT INFORMATION
  Report Type: 
  Country: None (occurrence: None)
  Receive Date: 20100125
  Receipt Date: 20100113
  Transmission Date: 20100710
  Serious: Yes (Hospitalization)
  Sender: FDA-Public Use
  Company Number: PHHY2009TW55801

PATIENT
  Sex: Female
  Weight: 70 kg

DRUGS (3)
  1. ACLASTA [Suspect]
     Indication: OSTEOPOROSIS
     Dosage: 5 MG, ONCE
     Route: 042
     Dates: start: 20091215, end: 20091215
  2. NEXIUM [Concomitant]
     Indication: GASTRIC ULCER HAEMORRHAGE
     Dosage: 40 MG, DAILY
     Route: 048
     Dates: start: 20091126
  3. BIO-CAL [Concomitant]
     Indication: MINERAL SUPPLEMENTATION
     Dosage: UNK
     Route: 048
     Dates: start: 20091215

REACTIONS (5)
  - ACUTE PHASE REACTION [None]
  - ASTHENIA [None]
  - HYPOCALCAEMIA [None]
  - PYREXIA [None]
  - SOMNOLENCE [None]
